FAERS Safety Report 9565747 (Version 1)
Quarter: 2013Q3

REPORT INFORMATION
  Report Type: Spontaneous
  Country: AR (occurrence: AR)
  Receive Date: 20130930
  Receipt Date: 20130930
  Transmission Date: 20140515
  Serious: Yes (Hospitalization)
  Sender: FDA-Public Use
  Company Number: AR-GLAXOSMITHKLINE-A1043245A

PATIENT
  Age: 23 Year
  Sex: Female

DRUGS (3)
  1. LAMICTAL [Suspect]
     Indication: AFFECTIVE DISORDER
     Dosage: 100MG PER DAY
     Route: 065
  2. PAXIL CR [Concomitant]
  3. RISPERIDONE [Concomitant]

REACTIONS (4)
  - Hypersensitivity [Recovering/Resolving]
  - Leukocytosis [Unknown]
  - Transaminases increased [Unknown]
  - Rash morbilliform [Unknown]
